FAERS Safety Report 7888072-3 (Version None)
Quarter: 2011Q4

REPORT INFORMATION
  Report Type: 
  Country: None (occurrence: None)
  Receive Date: 20111101
  Receipt Date: 20111020
  Transmission Date: 20120403
  Serious: Yes (Congenital Anomaly, Other)
  Sender: FDA-Public Use
  Company Number: AUR-APL-2011-05600

PATIENT
  Sex: Male
  Weight: 0.425 kg

DRUGS (1)
  1. ZIDOVUDINE [Suspect]
     Indication: ANTIVIRAL TREATMENT
     Dates: start: 20110915, end: 20110915

REACTIONS (4)
  - MATERNAL DRUGS AFFECTING FOETUS [None]
  - FOETAL GROWTH RESTRICTION [None]
  - PREMATURE BABY [None]
  - CONGENITAL ANOMALY [None]
